FAERS Safety Report 13479693 (Version 2)
Quarter: 2017Q3

REPORT INFORMATION
  Report Type: Report from Study
  Country: US (occurrence: US)
  Receive Date: 20170424
  Receipt Date: 20170728
  Transmission Date: 20171127
  Serious: No
  Sender: FDA-Public Use
  Company Number: US-AMGEN-USASL2017012715

PATIENT
  Sex: Female

DRUGS (1)
  1. REPATHA [Suspect]
     Active Substance: EVOLOCUMAB
     Indication: PRODUCT USED FOR UNKNOWN INDICATION
     Dosage: UNK, ONCE IN EVERY 3 WEEKS OR MONTH
     Route: 065
     Dates: start: 2016

REACTIONS (2)
  - Intentional product misuse [Unknown]
  - Injection site pain [Unknown]
